FAERS Safety Report 19657497 (Version 1)
Quarter: 2021Q3

REPORT INFORMATION
  Report Type: Spontaneous
  Country: US (occurrence: US)
  Receive Date: 20210804
  Receipt Date: 20210804
  Transmission Date: 20211014
  Serious: Yes (Hospitalization)
  Sender: FDA-Public Use
  Company Number: US-CELGENEUS-USA-20210707181

PATIENT
  Age: 75 Year
  Sex: Male
  Weight: 83.08 kg

DRUGS (14)
  1. JANUMET [Concomitant]
     Active Substance: METFORMIN HYDROCHLORIDE\SITAGLIPTIN PHOSPHATE
     Indication: TYPE 2 DIABETES MELLITUS
     Dosage: 100/50 MILLIGRAM
     Route: 048
     Dates: start: 2006
  2. ASPIRIN. [Concomitant]
     Active Substance: ASPIRIN
     Indication: COAGULOPATHY
     Dosage: 50 UNITS
     Route: 058
     Dates: start: 2006
  3. AZACITIDINE. [Suspect]
     Active Substance: AZACITIDINE
     Indication: MYELODYSPLASTIC SYNDROME
     Dosage: DAYS 1?5, 8, 9 (75 MG/M2)
     Route: 058
     Dates: start: 20210322
  4. METOPROLOL. [Concomitant]
     Active Substance: METOPROLOL
     Indication: HYPERTENSION
     Dosage: 100 MILLIGRAM
     Route: 048
     Dates: start: 2001
  5. METOPROLOL. [Concomitant]
     Active Substance: METOPROLOL
     Dosage: 50 MILLIGRAM Q. P.M.
     Route: 048
     Dates: start: 2001
  6. MULTIVITAMINS [Concomitant]
     Active Substance: VITAMINS
     Indication: NUTRITIONAL SUPPLEMENTATION
     Dosage: 1 TABLET
     Route: 048
     Dates: start: 2020
  7. VENETOCLAX. [Suspect]
     Active Substance: VENETOCLAX
     Indication: MYELODYSPLASTIC SYNDROME
     Route: 048
  8. FOLIC ACID. [Concomitant]
     Active Substance: FOLIC ACID
     Indication: ANAEMIA
     Dosage: 1 MILLIGRAM
     Route: 048
     Dates: start: 2020
  9. PROCRIT [Concomitant]
     Active Substance: ERYTHROPOIETIN
     Indication: ANAEMIA
     Dosage: 1000 UNITS
     Route: 058
     Dates: start: 2020
  10. ASPIRIN. [Concomitant]
     Active Substance: ASPIRIN
     Indication: PROPHYLAXIS
     Dosage: 81 MILLIGRAM
     Route: 048
     Dates: start: 2015
  11. SYNTHROID [Concomitant]
     Active Substance: LEVOTHYROXINE SODIUM
     Indication: THYROID DISORDER
     Dosage: 81 MICROGRAM
     Route: 048
     Dates: start: 2005
  12. VITAMIN E NOS [Concomitant]
     Active Substance: .ALPHA.-TOCOPHEROL
     Indication: NUTRITIONAL SUPPLEMENTATION
     Dosage: 5000 UNITS
     Route: 048
     Dates: start: 2020
  13. LANTUS INSULINE [Concomitant]
     Dosage: 50 UNIT AT BEDTIME
     Route: 058
     Dates: start: 2006
  14. LANTUS INSULINE [Concomitant]
     Indication: TYPE 2 DIABETES MELLITUS
     Dosage: 60 UNITS.
     Route: 058
     Dates: start: 2006

REACTIONS (1)
  - Anaemia [Not Recovered/Not Resolved]

NARRATIVE: CASE EVENT DATE: 20210720
